FAERS Safety Report 9321418 (Version 3)
Quarter: 2013Q2

REPORT INFORMATION
  Report Type: Report from Study
  Country: FR (occurrence: FR)
  Receive Date: 20130531
  Receipt Date: 20130627
  Transmission Date: 20140414
  Serious: Yes (Death, Hospitalization, Other)
  Sender: FDA-Public Use
  Company Number: FR-ROCHE-1230497

PATIENT
  Age: 66 Year
  Sex: Female
  Weight: 68 kg

DRUGS (23)
  1. BEVACIZUMAB [Suspect]
     Indication: OVARIAN CANCER
     Route: 065
  2. CARBOPLATIN [Suspect]
     Indication: OVARIAN CANCER
     Dosage: LAST DOSE PRIOR TO SAE ON 29/APR/2013
     Route: 042
     Dates: start: 20130319, end: 20130603
  3. PACLITAXEL [Suspect]
     Indication: OVARIAN CANCER
     Dosage: LAST DOSE PRIOR TO SAE ON 29/APR/2013
     Route: 042
     Dates: start: 20130319, end: 20130603
  4. COVERSYL [Concomitant]
  5. NOVONORM [Concomitant]
  6. LEVOTHYROX [Concomitant]
  7. LEXOMIL [Concomitant]
  8. LOVENOX [Concomitant]
  9. EMEND [Concomitant]
     Route: 065
     Dates: start: 20130319, end: 20130322
  10. RANIPLEX [Concomitant]
     Route: 065
     Dates: start: 20130319, end: 20130319
  11. RANIPLEX [Concomitant]
     Route: 065
     Dates: start: 20130408, end: 20130408
  12. RANIPLEX [Concomitant]
     Route: 065
     Dates: start: 20130429, end: 20130429
  13. POLARAMINE [Concomitant]
     Route: 065
     Dates: start: 20130319, end: 20130319
  14. POLARAMINE [Concomitant]
     Route: 065
     Dates: start: 20130408, end: 20130408
  15. POLARAMINE [Concomitant]
     Route: 065
     Dates: start: 20130429, end: 20130429
  16. MEDROL [Concomitant]
     Route: 065
     Dates: start: 20130318, end: 20130319
  17. MEDROL [Concomitant]
     Route: 065
     Dates: start: 20130407, end: 20130409
  18. MEDROL [Concomitant]
     Route: 065
     Dates: start: 20130428, end: 20130430
  19. ZOPHREN [Concomitant]
     Route: 065
     Dates: start: 20130429, end: 20130429
  20. ZOPHREN [Concomitant]
     Route: 065
     Dates: start: 20130408, end: 20130408
  21. FORLAX (FRANCE) [Concomitant]
     Route: 065
     Dates: start: 201304
  22. ESOMEPRAZOLE [Concomitant]
     Route: 065
     Dates: start: 20130411
  23. MOTILIUM (FRANCE) [Concomitant]
     Route: 065
     Dates: start: 20130411, end: 20130428

REACTIONS (2)
  - Lung disorder [Fatal]
  - Pyrexia [Unknown]
